FAERS Safety Report 5737320-4 (Version None)
Quarter: 2008Q2

REPORT INFORMATION
  Report Type: 
  Country: None (occurrence: None)
  Receive Date: 20080513
  Receipt Date: 20080513
  Transmission Date: 20081010
  Serious: No
  Sender: FDA-Public Use
  Company Number: None

PATIENT
  Age: 69 Year
  Sex: Female

DRUGS (1)
  1. DIGITEK 0.25MG AMIDE-BERTEK- [Suspect]
     Dosage: 0.25MG DAIILY PO
     Route: 048

REACTIONS (2)
  - HEART RATE DECREASED [None]
  - WRONG TECHNIQUE IN DRUG USAGE PROCESS [None]
